FAERS Safety Report 10622631 (Version 1)
Quarter: 2014Q4

REPORT INFORMATION
  Report Type: Spontaneous
  Country: US (occurrence: US)
  Receive Date: 20141203
  Receipt Date: 20141203
  Transmission Date: 20150529
  Serious: Yes (Hospitalization)
  Sender: FDA-Public Use
  Company Number: US-BRISTOL-MYERS SQUIBB COMPANY-21644091

PATIENT
  Age: 64 Year
  Sex: Male
  Weight: 90 kg

DRUGS (2)
  1. IBRUTINIB [Suspect]
     Active Substance: IBRUTINIB
     Indication: CHRONIC LYMPHOCYTIC LEUKAEMIA
     Dosage: CAPSULE
     Dates: start: 20141001, end: 20141105
  2. COUMADIN [Suspect]
     Active Substance: WARFARIN SODIUM

REACTIONS (6)
  - Contusion [Unknown]
  - Blindness unilateral [Not Recovered/Not Resolved]
  - International normalised ratio increased [Unknown]
  - Drug interaction [Unknown]
  - Haematochezia [Unknown]
  - Urinary tract infection [Unknown]

NARRATIVE: CASE EVENT DATE: 2014
